FAERS Safety Report 8553457-9 (Version None)
Quarter: 2012Q3

REPORT INFORMATION
  Report Type: 
  Country: None (occurrence: None)
  Receive Date: 20120719
  Receipt Date: 20120705
  Transmission Date: 20120928
  Serious: Yes (Hospitalization)
  Sender: FDA-Public Use
  Company Number: 12AE005

PATIENT
  Age: 2 Year
  Sex: Male
  Weight: 14.5151 kg

DRUGS (1)
  1. ACETAMINOPHEN [Suspect]
     Indication: EAR INFECTION
     Dosage: 18 TABLETS
     Dates: start: 20120628

REACTIONS (2)
  - ACCIDENTAL DRUG INTAKE BY CHILD [None]
  - FAILURE OF CHILD RESISTANT MECHANISM FOR PHARMACEUTICAL PRODUCT [None]
